FAERS Safety Report 6500198-5 (Version None)
Quarter: 2009Q4

REPORT INFORMATION
  Report Type: 
  Country: None (occurrence: None)
  Receive Date: 20091216
  Receipt Date: 20091214
  Transmission Date: 20100525
  Serious: Yes (Hospitalization)
  Sender: FDA-Public Use
  Company Number: FR-SANOFI-AVENTIS-2009SA008607

PATIENT
  Age: 21 Year
  Sex: Female

DRUGS (3)
  1. STILNOX [Suspect]
     Indication: MULTIPLE DRUG OVERDOSE
     Route: 048
     Dates: start: 20090924, end: 20090924
  2. PARACETAMOL [Suspect]
     Indication: MULTIPLE DRUG OVERDOSE
     Route: 048
     Dates: start: 20090924, end: 20090924
  3. ATARAX [Suspect]
     Indication: MULTIPLE DRUG OVERDOSE
     Route: 048
     Dates: start: 20090924, end: 20090924

REACTIONS (4)
  - CYTOLYTIC HEPATITIS [None]
  - MULTIPLE DRUG OVERDOSE INTENTIONAL [None]
  - SOMNOLENCE [None]
  - TACHYCARDIA [None]
